FAERS Safety Report 15710218 (Version 5)
Quarter: 2019Q1

REPORT INFORMATION
  Report Type: Spontaneous
  Country: US (occurrence: US)
  Receive Date: 20181211
  Receipt Date: 20190313
  Transmission Date: 20190417
  Serious: Yes (Other)
  Sender: FDA-Public Use
  Company Number: US-SHIRE-US201847775

PATIENT
  Age: 19 Year
  Sex: Male
  Weight: 71.5 kg

DRUGS (1)
  1. ADVATE [Suspect]
     Active Substance: ANTIHEMOPHILIC FACTOR, HUMAN RECOMBINANT
     Indication: PRODUCT USED FOR UNKNOWN INDICATION
     Dosage: 3115 IU, UNK
     Route: 065
     Dates: start: 20181104

REACTIONS (5)
  - Haemorrhage [Recovering/Resolving]
  - Contusion [Unknown]
  - Pain [Unknown]
  - Limb injury [Unknown]
  - Peripheral swelling [Unknown]

NARRATIVE: CASE EVENT DATE: 20180512
